FAERS Safety Report 11392531 (Version 2)
Quarter: 2015Q3

REPORT INFORMATION
  Report Type: Spontaneous
  Country: FR (occurrence: FR)
  Receive Date: 20150818
  Receipt Date: 20150902
  Transmission Date: 20151125
  Serious: Yes (Hospitalization)
  Sender: FDA-Public Use
  Company Number: FR-GE HEALTHCARE MEDICAL DIAGNOSTICS-VISP-PR-1508S-0315

PATIENT
  Age: 75 Year
  Sex: Female

DRUGS (15)
  1. SPECIAFOLDINE [Concomitant]
     Active Substance: FOLIC ACID
  2. LANTUS [Concomitant]
     Active Substance: INSULIN GLARGINE
  3. ESIDREX [Concomitant]
     Active Substance: HYDROCHLOROTHIAZIDE
  4. VISIPAQUE [Suspect]
     Active Substance: IODIXANOL
     Indication: DIAGNOSTIC PROCEDURE
  5. DUOPLAVIN [Concomitant]
     Active Substance: ASPIRIN\CLOPIDOGREL
  6. FUROSEMIDE 500 [Concomitant]
     Active Substance: FUROSEMIDE
  7. CRESTOR [Concomitant]
     Active Substance: ROSUVASTATIN CALCIUM
  8. APIDRA [Concomitant]
     Active Substance: INSULIN GLULISINE
  9. NEBILOX [Concomitant]
     Active Substance: NEBIVOLOL HYDROCHLORIDE
  10. SANDOSTATINE LP [Concomitant]
  11. DOSTINEX 0.5 [Concomitant]
  12. VISIPAQUE [Suspect]
     Active Substance: IODIXANOL
     Indication: ACUTE CORONARY SYNDROME
     Dosage: DOSE NOT REPORTED
     Dates: start: 20150105, end: 20150105
  13. RENAGEL 800 [Concomitant]
  14. AMLOR [Concomitant]
     Active Substance: AMLODIPINE BESYLATE
  15. MOPRAL [Concomitant]
     Active Substance: OMEPRAZOLE SODIUM

REACTIONS (2)
  - Chronic kidney disease [Recovered/Resolved]
  - Acute kidney injury [Recovered/Resolved]

NARRATIVE: CASE EVENT DATE: 20150107
